FAERS Safety Report 6488149-3 (Version None)
Quarter: 2009Q4

REPORT INFORMATION
  Report Type: 
  Country: None (occurrence: None)
  Receive Date: 20091210
  Receipt Date: 20091208
  Transmission Date: 20100525
  Serious: Yes (Other)
  Sender: FDA-Public Use
  Company Number: A0833984A

PATIENT
  Sex: Female
  Weight: 87 kg

DRUGS (4)
  1. LAPATINIB [Suspect]
     Indication: BREAST CANCER
     Dosage: 1500MG PER DAY
     Route: 048
     Dates: start: 20091113
  2. PACLITAXEL [Suspect]
     Indication: BREAST CANCER
     Route: 042
  3. TRASTUZUMAB [Suspect]
     Indication: BREAST CANCER
     Route: 042
  4. AUGMENTIN [Concomitant]
     Indication: URINARY TRACT INFECTION

REACTIONS (6)
  - ABDOMINAL PAIN [None]
  - DIARRHOEA [None]
  - DYSURIA [None]
  - HYPOKALAEMIA [None]
  - POLLAKIURIA [None]
  - URINARY TRACT INFECTION [None]
